FAERS Safety Report 14313253 (Version 3)
Quarter: 2018Q1

REPORT INFORMATION
  Report Type: Report from Study
  Country: US (occurrence: US)
  Receive Date: 20171221
  Receipt Date: 20180130
  Transmission Date: 20180509
  Serious: Yes (Hospitalization, Other)
  Sender: FDA-Public Use
  Company Number: US-BAYER-2017-121932

PATIENT
  Sex: Female
  Weight: 62.13 kg

DRUGS (9)
  1. BAYER ASPIRIN [Suspect]
     Active Substance: ASPIRIN
     Dosage: 325 MG, QD
  2. REMODULIN [Concomitant]
     Active Substance: TREPROSTINIL
     Dosage: UNK
  3. ADEMPAS [Suspect]
     Active Substance: RIOCIGUAT
     Indication: PULMONARY ARTERIAL HYPERTENSION
     Dosage: 2.5 MG, TID
     Route: 048
  4. ORENITRAM [Suspect]
     Active Substance: TREPROSTINIL
     Dosage: UNK
  5. OPSUMIT [Concomitant]
     Active Substance: MACITENTAN
     Dosage: UNK
  6. ADEMPAS [Suspect]
     Active Substance: RIOCIGUAT
     Indication: PULMONARY ARTERIAL HYPERTENSION
     Dosage: UNK
     Dates: start: 20140915
  7. ADEMPAS [Suspect]
     Active Substance: RIOCIGUAT
     Indication: PULMONARY ARTERIAL HYPERTENSION
     Dosage: 2.5 MG, TID
     Route: 048
  8. ADEMPAS [Suspect]
     Active Substance: RIOCIGUAT
     Indication: PULMONARY ARTERIAL HYPERTENSION
     Dosage: 2.5 MG, TID
     Route: 048
  9. ADEMPAS [Suspect]
     Active Substance: RIOCIGUAT
     Indication: PULMONARY ARTERIAL HYPERTENSION
     Dosage: 2.5 MG, TID
     Route: 048

REACTIONS (17)
  - Injection site pain [Not Recovered/Not Resolved]
  - Vomiting [None]
  - Internal haemorrhage [None]
  - Pain in extremity [None]
  - Pain in jaw [Unknown]
  - Dizziness [Recovered/Resolved]
  - Pulmonary arterial hypertension [Unknown]
  - Injection site induration [None]
  - Chills [None]
  - Dizziness [Unknown]
  - Diarrhoea [Not Recovered/Not Resolved]
  - Peripheral swelling [Unknown]
  - Blood pressure systolic decreased [Unknown]
  - Discoloured vomit [Recovered/Resolved]
  - Faeces discoloured [None]
  - Dyspnoea [Unknown]
  - Dyspnoea [Unknown]

NARRATIVE: CASE EVENT DATE: 2017
